FAERS Safety Report 10817910 (Version 1)
Quarter: 2015Q1

REPORT INFORMATION
  Report Type: Spontaneous
  Country: US (occurrence: US)
  Receive Date: 20150218
  Receipt Date: 20150218
  Transmission Date: 20150721
  Serious: No
  Sender: FDA-Public Use
  Company Number: US-GLAXOSMITHKLINE-US2015GSK013748

PATIENT
  Sex: Female

DRUGS (2)
  1. BUPROPION SR PROLONGED-RELEASE TABLET [Suspect]
     Active Substance: BUPROPION
  2. LAMOTRIGINE TABLET [Suspect]
     Active Substance: LAMOTRIGINE

REACTIONS (1)
  - Drug ineffective [Unknown]
